FAERS Safety Report 19497563 (Version 1)
Quarter: 2021Q3

REPORT INFORMATION
  Report Type: Spontaneous
  Country: US (occurrence: US)
  Receive Date: 20210706
  Receipt Date: 20210706
  Transmission Date: 20211014
  Serious: No
  Sender: FDA-Public Use
  Company Number: None

PATIENT
  Age: 63 Year
  Sex: Female
  Weight: 60.75 kg

DRUGS (2)
  1. ATORVASTATIN 10MG [Suspect]
     Active Substance: ATORVASTATIN
     Indication: BLOOD CHOLESTEROL INCREASED
     Route: 048
     Dates: start: 20171130, end: 20180730
  2. ADVIL [Concomitant]
     Active Substance: IBUPROFEN

REACTIONS (19)
  - Macular degeneration [None]
  - Muscular weakness [None]
  - Insomnia [None]
  - General physical health deterioration [None]
  - Amnesia [None]
  - Communication disorder [None]
  - Thyroid mass [None]
  - Goitre [None]
  - Photosensitivity reaction [None]
  - Vision blurred [None]
  - Chest discomfort [None]
  - Hyperhidrosis [None]
  - Confusional state [None]
  - Tinnitus [None]
  - Cataract [None]
  - Diarrhoea [None]
  - Pain in extremity [None]
  - Hypertrichosis [None]
  - Oliguria [None]

NARRATIVE: CASE EVENT DATE: 20171130
